FAERS Safety Report 9915742 (Version 1)
Quarter: 2014Q1

REPORT INFORMATION
  Report Type: Spontaneous
  Country: DE (occurrence: None)
  Receive Date: 20140218
  Receipt Date: 20140218
  Transmission Date: 20141002
  Serious: Yes (Other)
  Sender: FDA-Public Use
  Company Number: 1402-0327

PATIENT
  Age: 79 Year
  Sex: Male

DRUGS (1)
  1. EYLEA [Suspect]
     Indication: AGE-RELATED MACULAR DEGENERATION
     Dosage: 1 IN 3 M, INTRAOCULAR
     Route: 031
     Dates: start: 201306

REACTIONS (5)
  - Vitreous floaters [None]
  - Drug ineffective [None]
  - Visual impairment [None]
  - Incorrect drug administration duration [None]
  - Visual impairment [None]
